FAERS Safety Report 6835958-4 (Version None)
Quarter: 2010Q3

REPORT INFORMATION
  Report Type: 
  Country: None (occurrence: None)
  Receive Date: 20100713
  Receipt Date: 20100706
  Transmission Date: 20110219
  Serious: Yes (Death, Life-Threatening, Other)
  Sender: FDA-Public Use
  Company Number: A0868678A

PATIENT
  Age: 42 Year
  Sex: Male

DRUGS (3)
  1. COREG [Suspect]
     Dosage: 6.25MG TWICE PER DAY
     Route: 048
     Dates: start: 20090601, end: 20100501
  2. FLOVENT [Concomitant]
  3. VENTOLIN [Concomitant]

REACTIONS (1)
  - DEATH [None]
